FAERS Safety Report 14157908 (Version 2)
Quarter: 2017Q4

REPORT INFORMATION
  Report Type: Spontaneous
  Country: US (occurrence: US)
  Receive Date: 20171105
  Receipt Date: 20171105
  Transmission Date: 20180321
  Serious: Yes (Death, Hospitalization)
  Sender: FDA-Public Use
  Company Number: US-CONCORDIA PHARMACEUTICALS INC.-MAPI_00011035

PATIENT
  Age: 52 Year
  Sex: Female
  Weight: 118.8 kg

DRUGS (22)
  1. REMODULIN [Suspect]
     Active Substance: TREPROSTINIL
     Route: 058
  2. ACETAMINOPHEN. [Concomitant]
     Active Substance: ACETAMINOPHEN
     Indication: PRODUCT USED FOR UNKNOWN INDICATION
     Route: 048
  3. REMODULIN [Suspect]
     Active Substance: TREPROSTINIL
     Indication: PULMONARY ARTERIAL HYPERTENSION
     Route: 058
     Dates: start: 20150218, end: 20150621
  4. ASPIRIN. [Concomitant]
     Active Substance: ASPIRIN
     Indication: PRODUCT USED FOR UNKNOWN INDICATION
     Route: 048
  5. LANOXIN [Suspect]
     Active Substance: DIGOXIN
     Indication: PULMONARY ARTERIAL HYPERTENSION
     Route: 065
  6. NIMBEX [Suspect]
     Active Substance: CISATRACURIUM BESYLATE
     Indication: PARALYSIS
     Route: 065
     Dates: start: 20150618
  7. SPIRONOLACTONE. [Concomitant]
     Active Substance: SPIRONOLACTONE
     Indication: PRODUCT USED FOR UNKNOWN INDICATION
     Route: 048
  8. REMODULIN [Suspect]
     Active Substance: TREPROSTINIL
     Route: 058
  9. GLUCAGON. [Concomitant]
     Active Substance: GLUCAGON
     Indication: PRODUCT USED FOR UNKNOWN INDICATION
     Dosage: 1 MG/1 ML AS NEEDED
     Route: 030
  10. DEXTROSE. [Concomitant]
     Active Substance: DEXTROSE
     Indication: PRODUCT USED FOR UNKNOWN INDICATION
     Route: 048
  11. LISPRO INSULIN [Concomitant]
     Active Substance: INSULIN LISPRO
     Indication: PRODUCT USED FOR UNKNOWN INDICATION
     Route: 058
  12. DEXTROSE. [Concomitant]
     Active Substance: DEXTROSE
     Dosage: 12.5 GM/25 ML AS NEEDED
     Route: 042
  13. REMODULIN [Suspect]
     Active Substance: TREPROSTINIL
     Route: 058
     Dates: start: 20150313
  14. REMODULIN [Suspect]
     Active Substance: TREPROSTINIL
     Route: 058
     Dates: start: 20150310
  15. REVATIO [Concomitant]
     Active Substance: SILDENAFIL CITRATE
     Indication: PRODUCT USED FOR UNKNOWN INDICATION
     Route: 065
  16. ALBUTEROL SULFATE AND IPRATROPIUM BROMIDE [Concomitant]
     Active Substance: ALBUTEROL SULFATE\IPRATROPIUM BROMIDE
     Indication: PRODUCT USED FOR UNKNOWN INDICATION
  17. ATORVASTATIN [Concomitant]
     Active Substance: ATORVASTATIN
     Indication: PRODUCT USED FOR UNKNOWN INDICATION
     Route: 048
  18. POTASSIUM-SODIUM PHOSPHATE [Concomitant]
     Indication: PRODUCT USED FOR UNKNOWN INDICATION
     Route: 048
  19. FLUTICASONE W/SALMETEROL [Concomitant]
     Active Substance: FLUTICASONE PROPIONATE\SALMETEROL XINAFOATE
     Indication: PRODUCT USED FOR UNKNOWN INDICATION
  20. HEPARIN [Concomitant]
     Active Substance: HEPARIN SODIUM
     Indication: PRODUCT USED FOR UNKNOWN INDICATION
     Route: 058
  21. MAGNESIUM OXIDE. [Concomitant]
     Active Substance: MAGNESIUM OXIDE
     Indication: PRODUCT USED FOR UNKNOWN INDICATION
     Route: 065
  22. NYSTATIN. [Concomitant]
     Active Substance: NYSTATIN
     Indication: PRODUCT USED FOR UNKNOWN INDICATION
     Route: 048

REACTIONS (32)
  - Dyspnoea [Unknown]
  - Pulmonary congestion [Unknown]
  - Oliguria [Unknown]
  - Heart rate increased [Unknown]
  - Pneumonia aspiration [Unknown]
  - Hypoxia [Unknown]
  - Pollakiuria [Unknown]
  - Blood pressure increased [Unknown]
  - Acute kidney injury [Recovered/Resolved]
  - Oedema [Unknown]
  - Cardiac arrest [Fatal]
  - Respiratory failure [Unknown]
  - Toxicity to various agents [Recovered/Resolved]
  - Pneumonia [Unknown]
  - Hyponatraemia [Fatal]
  - Sinus tachycardia [Fatal]
  - Pulmonary oedema [Unknown]
  - Hypotension [Unknown]
  - Haemorrhage [Unknown]
  - Thrombocytopenia [Unknown]
  - Ventricular tachycardia [Unknown]
  - Cardiomegaly [Unknown]
  - Tachycardia [Unknown]
  - Electrocardiogram abnormal [Unknown]
  - Fluid overload [Unknown]
  - Liver disorder [Unknown]
  - Cardiogenic shock [Fatal]
  - Pulmonary arterial hypertension [Unknown]
  - Disseminated intravascular coagulation [Unknown]
  - Asthenia [Unknown]
  - Pulmonary veno-occlusive disease [Unknown]
  - Hypovolaemia [Recovered/Resolved]

NARRATIVE: CASE EVENT DATE: 2015
